FAERS Safety Report 7356070-4 (Version None)
Quarter: 2011Q1

REPORT INFORMATION
  Report Type: 
  Country: None (occurrence: None)
  Receive Date: 20110316
  Receipt Date: 20110309
  Transmission Date: 20110831
  Serious: Yes (Hospitalization, Other)
  Sender: FDA-Public Use
  Company Number: US-US-EMD SERONO, INC.-7047049

PATIENT
  Sex: Female
  Weight: 137 kg

DRUGS (1)
  1. REBIF [Suspect]
     Indication: PRODUCT USED FOR UNKNOWN INDICATION
     Route: 058
     Dates: start: 20110211, end: 20110301

REACTIONS (10)
  - INJECTION SITE ERYTHEMA [None]
  - INCISION SITE COMPLICATION [None]
  - POST PROCEDURAL COMPLICATION [None]
  - APPETITE DISORDER [None]
  - CHOLELITHIASIS [None]
  - CHOLECYSTITIS [None]
  - BRONCHITIS [None]
  - MYALGIA [None]
  - INCISION SITE PAIN [None]
  - FATIGUE [None]
